FAERS Safety Report 11844601 (Version 1)
Quarter: 2015Q4

REPORT INFORMATION
  Report Type: Spontaneous
  Country: US (occurrence: None)
  Receive Date: 20151216
  Receipt Date: 20151216
  Transmission Date: 20160305
  Serious: Yes (Other)
  Sender: FDA-Public Use
  Company Number: None

PATIENT
  Age: 51 Year
  Sex: Female
  Weight: 54.43 kg

DRUGS (4)
  1. BABY CHEST RUB [Concomitant]
  2. METHYLPREDNISOLONE 4 MG QUALITEST [Suspect]
     Active Substance: METHYLPREDNISOLONE
     Indication: COSTOCHONDRITIS
     Dosage: TAKE 6 TABLETS ON DAY 1 AS DIR TAKE 6TABLETS ON D TAKEN BY MOUTH
     Route: 048
     Dates: start: 20151213, end: 20151215
  3. BABY ASPIRIN [Concomitant]
     Active Substance: ASPIRIN
  4. HEAT PACK [Concomitant]

REACTIONS (4)
  - Insomnia [None]
  - Product label confusion [None]
  - Anxiety [None]
  - Accidental overdose [None]

NARRATIVE: CASE EVENT DATE: 20151213
